FAERS Safety Report 11503844 (Version 2)
Quarter: 2016Q2

REPORT INFORMATION
  Report Type: Spontaneous
  Country: US (occurrence: US)
  Receive Date: 20150914
  Receipt Date: 20160630
  Transmission Date: 20160815
  Serious: No
  Sender: FDA-Public Use
  Company Number: US-ACTELION PHARMACEUTICALS US, INC.-A-NJ2015-112895

PATIENT
  Age: 13 Year
  Sex: Female

DRUGS (4)
  1. OMEPRAZOLE. [Concomitant]
     Active Substance: OMEPRAZOLE
     Dosage: 20 MG, QD
     Route: 048
     Dates: start: 20131030
  2. DILANTIN [Concomitant]
     Active Substance: PHENYTOIN
     Dosage: 150 MG, QD (3 TABLETS OF 50 MG)
     Route: 048
     Dates: start: 20131030
  3. FOLIC ACID. [Concomitant]
     Active Substance: FOLIC ACID
     Dosage: 8 ML, TID (5 MG/ML)
     Route: 048
     Dates: start: 20131030
  4. ZAVESCA [Suspect]
     Active Substance: MIGLUSTAT
     Indication: LIPIDOSIS
     Dosage: 100 MG, BID
     Route: 048
     Dates: start: 20091223

REACTIONS (4)
  - Pyrexia [Unknown]
  - Diarrhoea [Unknown]
  - Malaise [Recovered/Resolved]
  - Drug dose omission [Unknown]
